FAERS Safety Report 4628081-0 (Version None)
Quarter: 2005Q2

REPORT INFORMATION
  Report Type: 
  Country: None (occurrence: None)
  Receive Date: 20050401
  Receipt Date: 20050321
  Transmission Date: 20051028
  Serious: Yes (Hospitalization)
  Sender: FDA-Public Use
  Company Number: 05-03-0487

PATIENT
  Sex: Male

DRUGS (1)
  1. GLIBENCLAMIDE [Suspect]
     Indication: DIABETES MELLITUS
     Dosage: 1.75MG

REACTIONS (1)
  - SUBARACHNOID HAEMORRHAGE [None]
